FAERS Safety Report 22908161 (Version 2)
Quarter: 2023Q4

REPORT INFORMATION
  Report Type: Spontaneous
  Country: CA (occurrence: None)
  Receive Date: 20230905
  Receipt Date: 20231023
  Transmission Date: 20240110
  Serious: Yes (Other)
  Sender: FDA-Public Use
  Company Number: CA-ROCHE-3415301

PATIENT
  Age: 13 Year
  Sex: Male

DRUGS (2)
  1. SOMATROPIN [Suspect]
     Active Substance: SOMATROPIN
     Indication: Short stature
     Route: 065
  2. SOMATROPIN [Suspect]
     Active Substance: SOMATROPIN
     Route: 065

REACTIONS (4)
  - Condition aggravated [Unknown]
  - Joint contracture [Unknown]
  - Osteochondrosis [Unknown]
  - Off label use [Unknown]
